FAERS Safety Report 22045091 (Version 2)
Quarter: 2023Q1

REPORT INFORMATION
  Report Type: Spontaneous
  Country: US (occurrence: US)
  Receive Date: 20230228
  Receipt Date: 20230329
  Transmission Date: 20230417
  Serious: Yes (Life-Threatening, Hospitalization, Other)
  Sender: FDA-Public Use
  Company Number: US-PFIZER INC-202300081478

PATIENT
  Age: 71 Year
  Sex: Female
  Weight: 49.9 kg

DRUGS (3)
  1. IBRANCE [Suspect]
     Active Substance: PALBOCICLIB
     Indication: Breast cancer
     Dosage: 100 MG, CYCLIC (WEEKS ON AND 1 WEEK OFF)
     Route: 048
  2. IBRANCE [Suspect]
     Active Substance: PALBOCICLIB
     Indication: Bone cancer
     Dosage: 125 MG, CYCLIC (125MG ONCE A DAY / 3 WEEKS ON 1 WEEK OFF)
     Dates: start: 202212
  3. IBRANCE [Suspect]
     Active Substance: PALBOCICLIB
     Indication: HER2 negative breast cancer

REACTIONS (5)
  - Pneumonia staphylococcal [Recovering/Resolving]
  - Acute respiratory failure [Unknown]
  - White blood cell count decreased [Recovered/Resolved]
  - Muscle disorder [Unknown]
  - Febrile neutropenia [Unknown]

NARRATIVE: CASE EVENT DATE: 20230106
